FAERS Safety Report 18897033 (Version 2)
Quarter: 2021Q2

REPORT INFORMATION
  Report Type: Spontaneous
  Country: DE (occurrence: DE)
  Receive Date: 20210216
  Receipt Date: 20210518
  Transmission Date: 20210717
  Serious: No
  Sender: FDA-Public Use
  Company Number: DE-ALKEM LABORATORIES LIMITED-DE-ALKEM-2020-08509

PATIENT
  Age: 60 Year
  Sex: Female

DRUGS (4)
  1. PREGABALIN. [Suspect]
     Active Substance: PREGABALIN
     Indication: CAT SCRATCH DISEASE
     Dosage: UNK
     Route: 065
  2. PIMECROLIMUS. [Concomitant]
     Active Substance: PIMECROLIMUS
     Indication: CAT SCRATCH DISEASE
     Dosage: UNK
     Route: 065
  3. CORTISONE [Concomitant]
     Active Substance: CORTISONE
     Indication: CAT SCRATCH DISEASE
     Dosage: UNK
     Route: 065
  4. METAMIZOLE [Concomitant]
     Active Substance: METAMIZOLE
     Indication: CAT SCRATCH DISEASE
     Dosage: UNK
     Route: 065

REACTIONS (3)
  - Cat scratch disease [Recovered/Resolved]
  - Disease progression [Recovered/Resolved]
  - Drug ineffective for unapproved indication [Unknown]
